FAERS Safety Report 7078785-8 (Version None)
Quarter: 2010Q4

REPORT INFORMATION
  Report Type: 
  Country: None (occurrence: None)
  Receive Date: 20101101
  Receipt Date: 20101101
  Transmission Date: 20110411
  Serious: Yes (Other)
  Sender: FDA-Public Use
  Company Number: None

PATIENT
  Age: 67 Year
  Sex: Male
  Weight: 104.3273 kg

DRUGS (2)
  1. GEMFIBROZIL [Suspect]
     Indication: BLOOD CHOLESTEROL ABNORMAL
     Dosage: 600 MG TWICE PER DAY PO
     Route: 048
     Dates: start: 20070101, end: 20100929
  2. GEMFIBROZIL [Suspect]
     Indication: BLOOD TRIGLYCERIDES ABNORMAL
     Dosage: 600 MG TWICE PER DAY PO
     Route: 048
     Dates: start: 20070101, end: 20100929

REACTIONS (2)
  - ASTHENIA [None]
  - DRUG INTERACTION [None]
